FAERS Safety Report 13678257 (Version 1)
Quarter: 2017Q2

REPORT INFORMATION
  Report Type: Spontaneous
  Country: PT (occurrence: PT)
  Receive Date: 20170622
  Receipt Date: 20170622
  Transmission Date: 20170830
  Serious: Yes (Other)
  Sender: FDA-Public Use
  Company Number: PT-BIOGEN-2016BI00256540

PATIENT
  Age: 49 Year
  Sex: Female

DRUGS (1)
  1. AVONEX [Suspect]
     Active Substance: INTERFERON BETA-1A
     Indication: MULTIPLE SCLEROSIS
     Route: 065
     Dates: start: 2000, end: 2015

REACTIONS (3)
  - Road traffic accident [Recovered/Resolved]
  - Spinal column injury [Unknown]
  - Craniocerebral injury [Unknown]

NARRATIVE: CASE EVENT DATE: 20090403
